FAERS Safety Report 6521672-1 (Version None)
Quarter: 2009Q4

REPORT INFORMATION
  Report Type: 
  Country: None (occurrence: None)
  Receive Date: 20091222
  Receipt Date: 20091209
  Transmission Date: 20100525
  Serious: Yes (Other)
  Sender: FDA-Public Use
  Company Number: 237253K09USA

PATIENT
  Age: 36 Year
  Sex: Female

DRUGS (7)
  1. REBIF [Suspect]
     Indication: MULTIPLE SCLEROSIS
     Dosage: 44 MCG, 3 IN 1 WEEKS, SUBCUATANEOUS
     Route: 058
     Dates: start: 20070101, end: 20080101
  2. REBIF [Suspect]
     Indication: MULTIPLE SCLEROSIS
     Dosage: 44 MCG, 3 IN 1 WEEKS, SUBCUATANEOUS
     Route: 058
     Dates: start: 20081101
  3. METFORMIN HCL [Concomitant]
  4. BYETTA [Concomitant]
  5. SYNTHROID [Concomitant]
  6. EFFEXOR [Concomitant]
  7. BIRTH CONTROL PILLS (ORAL CONTRACEPTIVE NOS) [Concomitant]

REACTIONS (4)
  - BLOOD GLUCOSE INCREASED [None]
  - CAESAREAN SECTION [None]
  - DRUG EXPOSURE DURING PREGNANCY [None]
  - UMBILICAL CORD AROUND NECK [None]
